FAERS Safety Report 5273255-1 (Version None)
Quarter: 2007Q1

REPORT INFORMATION
  Report Type: 
  Country: None (occurrence: None)
  Receive Date: 20070319
  Receipt Date: 20070307
  Transmission Date: 20070707
  Serious: Yes (Death, Other)
  Sender: FDA-Public Use
  Company Number: WAES0703USA02054

PATIENT
  Age: 21 Year
  Sex: Male

DRUGS (5)
  1. DECADRON [Suspect]
     Indication: T-CELL LYMPHOMA RECURRENT
     Dosage: 40 MG/DAILY, PO
     Route: 048
  2. INJ IFOMIDE (IFOSFAMIDE) [Suspect]
     Indication: T-CELL LYMPHOMA RECURRENT
     Dosage: 2500 MG/DAILY, IV
     Route: 042
  3. ETOPOSIDE [Suspect]
     Indication: T-CELL LYMPHOMA RECURRENT
     Dosage: 250 UG/DAILY
  4. CYTARABINE [Suspect]
     Indication: T-CELL LYMPHOMA RECURRENT
     Dosage: 160 MG/DAILY
  5. INJ UROMITEXAN (MESNA) [Suspect]
     Indication: T-CELL LYMPHOMA RECURRENT
     Dosage: 1500 MG/DAILY

REACTIONS (4)
  - DECREASED IMMUNE RESPONSIVENESS [None]
  - HEPATITIS E [None]
  - LYMPHOPENIA [None]
  - PANCYTOPENIA [None]
